FAERS Safety Report 16023419 (Version 2)
Quarter: 2019Q2

REPORT INFORMATION
  Report Type: Spontaneous
  Country: SI (occurrence: SI)
  Receive Date: 20190301
  Receipt Date: 20190412
  Transmission Date: 20190711
  Serious: Yes (Hospitalization, Other)
  Sender: FDA-Public Use
  Company Number: SI-JNJFOC-20190239920

PATIENT
  Age: 80 Year
  Sex: Female

DRUGS (6)
  1. PLIVIT D3 [Concomitant]
     Active Substance: CHOLECALCIFEROL
     Route: 065
  2. XARELTO [Suspect]
     Active Substance: RIVAROXABAN
     Indication: ATRIAL FIBRILLATION
     Route: 048
     Dates: start: 20190129
  3. NOLPAZA [Concomitant]
     Active Substance: PANTOPRAZOLE SODIUM
     Dosage: ONCE IN MOURNING
     Route: 065
  4. DIUVER [Concomitant]
     Active Substance: TORSEMIDE
     Dosage: ONCE IN MOURNING
     Route: 065
  5. CANDEA [Concomitant]
     Active Substance: CANDESARTAN CILEXETIL
     Dosage: AT HOUR OF SLEEP
     Route: 065
  6. CONCOR [Concomitant]
     Active Substance: BISOPROLOL FUMARATE
     Route: 065

REACTIONS (7)
  - Cardiac failure [Unknown]
  - Coronary artery stenosis [Unknown]
  - Hypertensive heart disease [Unknown]
  - Pulmonary hypertension [Unknown]
  - Right ventricular dilatation [Unknown]
  - Right ventricular systolic pressure decreased [Unknown]
  - Tricuspid valve incompetence [Unknown]

NARRATIVE: CASE EVENT DATE: 2019
